FAERS Safety Report 19135107 (Version 1)
Quarter: 2021Q2

REPORT INFORMATION
  Report Type: Spontaneous
  Country: GB (occurrence: GB)
  Receive Date: 20210414
  Receipt Date: 20210414
  Transmission Date: 20210717
  Serious: Yes (Disabling)
  Sender: FDA-Public Use
  Company Number: GB-TEVA-2021-GB-1891597

PATIENT
  Age: 61 Year
  Sex: Female

DRUGS (4)
  1. IRBESARTAN. [Suspect]
     Active Substance: IRBESARTAN
     Indication: HYPERTENSION
     Dosage: 150 MILLIGRAM DAILY;
     Route: 048
  2. DARIFENACINHYDROBROMID [Suspect]
     Active Substance: DARIFENACIN HYDROBROMIDE
     Indication: POLLAKIURIA
  3. DARIFENACINHYDROBROMID [Suspect]
     Active Substance: DARIFENACIN HYDROBROMIDE
     Indication: ILL-DEFINED DISORDER
     Dosage: 15 MILLIGRAM DAILY; 7.5MG 2 DAILY 15MG TOTAL
     Route: 048
     Dates: start: 20201113, end: 20210108
  4. DARIFENACINHYDROBROMID [Suspect]
     Active Substance: DARIFENACIN HYDROBROMIDE
     Indication: MICTURITION URGENCY

REACTIONS (8)
  - Oedema [Not Recovered/Not Resolved]
  - Mouth ulceration [Not Recovered/Not Resolved]
  - Back pain [Not Recovered/Not Resolved]
  - Dyspnoea [Not Recovered/Not Resolved]
  - Urinary retention [Not Recovered/Not Resolved]
  - Fatigue [Not Recovered/Not Resolved]
  - Arthralgia [Not Recovered/Not Resolved]
  - Insomnia [Not Recovered/Not Resolved]

NARRATIVE: CASE EVENT DATE: 20201216
